FAERS Safety Report 5352976-6 (Version None)
Quarter: 2007Q2

REPORT INFORMATION
  Report Type: 
  Country: None (occurrence: None)
  Receive Date: 20070607
  Receipt Date: 20070228
  Transmission Date: 20071010
  Serious: Yes (Other)
  Sender: FDA-Public Use
  Company Number: 2007SP004028

PATIENT
  Sex: Female

DRUGS (2)
  1. ALBUTEROL [Suspect]
     Indication: CHRONIC OBSTRUCTIVE PULMONARY DISEASE
     Dosage: ; PO
     Route: 048
  2. SINGULAIR /01362601/ [Concomitant]

REACTIONS (1)
  - PULMONARY THROMBOSIS [None]
